FAERS Safety Report 6739708-1 (Version None)
Quarter: 2010Q2

REPORT INFORMATION
  Report Type: 
  Country: None (occurrence: None)
  Receive Date: 20100525
  Receipt Date: 20100517
  Transmission Date: 20101027
  Serious: Yes (Other)
  Sender: FDA-Public Use
  Company Number: US-ROCHE-704167

PATIENT
  Sex: Female
  Weight: 76.7 kg

DRUGS (2)
  1. CAPECITABINE [Suspect]
     Dosage: 2 WEEKS ON AND 1 WEEK OFF
     Route: 048
     Dates: start: 20090713
  2. CAPECITABINE [Suspect]
     Dosage: DOSE WAS INCREASED
     Route: 048
     Dates: end: 20100503

REACTIONS (1)
  - TUMOUR MARKER INCREASED [None]
